FAERS Safety Report 7700443-4 (Version None)
Quarter: 2011Q3

REPORT INFORMATION
  Report Type: 
  Country: None (occurrence: None)
  Receive Date: 20110817
  Receipt Date: 20110804
  Transmission Date: 20111222
  Serious: Yes (Life-Threatening, Hospitalization)
  Sender: FDA-Public Use
  Company Number: TCI2011A04038

PATIENT
  Age: 62 Year
  Sex: Male

DRUGS (6)
  1. MAGNESIUM OXIDE [Concomitant]
  2. BESASTAR SR (BEZAFIBRATE) [Concomitant]
  3. ACTOS [Suspect]
     Indication: DIABETES MELLITUS
     Dosage: 15 MG (15 MG,1 IN 1 D)
     Route: 048
     Dates: start: 20100325, end: 20110601
  4. PANTOSIN (PANTETHINE) [Concomitant]
  5. AMARYL [Concomitant]
  6. TANATRIL (IMIDAPRIL HYDROCHLORIDE) [Concomitant]

REACTIONS (2)
  - BLADDER CANCER [None]
  - HAEMATURIA [None]
